FAERS Safety Report 12391809 (Version 1)
Quarter: 2016Q2

REPORT INFORMATION
  Report Type: Spontaneous
  Country: IN (occurrence: IN)
  Receive Date: 20160523
  Receipt Date: 20160523
  Transmission Date: 20160815
  Serious: Yes (Other)
  Sender: FDA-Public Use
  Company Number: IN-MYLANLABS-2016M1021069

PATIENT

DRUGS (2)
  1. VECURONIUM [Suspect]
     Active Substance: VECURONIUM BROMIDE
     Indication: MUSCLE SPASMS
     Dosage: AT A RATE OF 10MG/H; APPROXIMATELY 140MG IN 14 HOURS
     Route: 041
  2. SODIUM CHLORIDE. [Concomitant]
     Active Substance: SODIUM CHLORIDE
     Dosage: 50 MG/50 ML OF 0.9% SODIUM CHLORIDE
     Route: 041

REACTIONS (1)
  - Polyuria [Recovered/Resolved]
